FAERS Safety Report 8883972 (Version 1)
Quarter: 2012Q4

REPORT INFORMATION
  Report Type: 
  Country: US (occurrence: US)
  Receive Date: 20121102
  Receipt Date: 20121102
  Transmission Date: 20130627
  Serious: Yes (Other)
  Sender: FDA-Public Use
  Company Number: US-INCYTE CORPORATION-2012IN002168

PATIENT
  Sex: Male
  Weight: 83.9 kg

DRUGS (1)
  1. JAKAFI [Suspect]
     Indication: MYELOFIBROSIS
     Dosage: 20 mg, qd
     Route: 048
     Dates: start: 20120223, end: 2012

REACTIONS (1)
  - Stem cell transplant [Unknown]
